FAERS Safety Report 9922669 (Version 1)
Quarter: 2014Q1

REPORT INFORMATION
  Report Type: Report from Study
  Country: US (occurrence: US)
  Receive Date: 20140225
  Receipt Date: 20140225
  Transmission Date: 20141002
  Serious: Yes (Hospitalization)
  Sender: FDA-Public Use
  Company Number: US-BAYER-2014-029020

PATIENT
  Age: 67 Year
  Sex: Male
  Weight: 75.28 kg

DRUGS (1)
  1. NEXAVAR [Suspect]
     Indication: HEPATOCELLULAR CARCINOMA
     Dosage: 400 MG, BID
     Route: 048
     Dates: start: 20140127, end: 20140217

REACTIONS (3)
  - Stomatitis [None]
  - Dehydration [None]
  - Cough [None]
